FAERS Safety Report 12881162 (Version 4)
Quarter: 2019Q4

REPORT INFORMATION
  Report Type: Spontaneous
  Country: US (occurrence: US)
  Receive Date: 20161025
  Receipt Date: 20191212
  Transmission Date: 20200122
  Serious: Yes (Other)
  Sender: FDA-Public Use
  Company Number: US-JNJFOC-20161000561

PATIENT
  Sex: Male

DRUGS (15)
  1. RISPERDAL [Suspect]
     Active Substance: RISPERIDONE
     Dosage: EVERY MORNING
     Route: 048
     Dates: start: 20110329
  2. RISPERDAL [Suspect]
     Active Substance: RISPERIDONE
     Dosage: RISPERIDONE DECREASED FROM 06 MG TO 04 MG, EVERY AM AND PM.
     Route: 048
     Dates: start: 20120307
  3. INVEGA [Suspect]
     Active Substance: PALIPERIDONE
     Dosage: EVERY AM
     Route: 048
     Dates: start: 20100913, end: 20101013
  4. RISPERDAL M-TAB [Suspect]
     Active Substance: RISPERIDONE
     Dosage: EVERY AM
     Route: 048
     Dates: start: 20110627
  5. RISPERDAL M-TAB [Suspect]
     Active Substance: RISPERIDONE
     Dosage: EVERY AM
     Route: 048
     Dates: start: 20110725
  6. RISPERDAL CONSTA [Suspect]
     Active Substance: RISPERIDONE
     Route: 030
     Dates: start: 20120307, end: 20140113
  7. RISPERDAL [Suspect]
     Active Substance: RISPERIDONE
     Route: 048
     Dates: end: 20110809
  8. RISPERDAL [Suspect]
     Active Substance: RISPERIDONE
     Dosage: EVERY MORNING
     Route: 048
     Dates: start: 20110503
  9. INVEGA [Suspect]
     Active Substance: PALIPERIDONE
     Indication: SCHIZOPHRENIA
     Dosage: EVERY AM
     Route: 048
     Dates: start: 20090526, end: 20100816
  10. RISPERDAL [Suspect]
     Active Substance: RISPERIDONE
     Indication: SCHIZOPHRENIA
     Route: 048
     Dates: end: 20100329
  11. RISPERDAL [Suspect]
     Active Substance: RISPERIDONE
     Dosage: EVERY BEDTIME
     Route: 048
     Dates: start: 20101108, end: 20101213
  12. RISPERDAL [Suspect]
     Active Substance: RISPERIDONE
     Dosage: AM AND PM
     Route: 048
     Dates: start: 20110104
  13. INVEGA [Suspect]
     Active Substance: PALIPERIDONE
     Dosage: EVERY AM
     Route: 048
     Dates: start: 20101108, end: 20110809
  14. RISPERDAL CONSTA [Suspect]
     Active Substance: RISPERIDONE
     Indication: SCHIZOPHRENIA
     Dosage: IN VARYING DOSE OF 37.5 AND 50 MG
     Route: 030
     Dates: start: 20080723, end: 20090526
  15. RISPERDAL M-TAB [Suspect]
     Active Substance: RISPERIDONE
     Indication: SCHIZOPHRENIA
     Dosage: EVERY AM
     Route: 048
     Dates: start: 20100113, end: 20100322

REACTIONS (6)
  - Gynaecomastia [Unknown]
  - Hallucination, visual [Unknown]
  - Eye movement disorder [Unknown]
  - Cardiac murmur [Unknown]
  - Emotional distress [Unknown]
  - Asthenia [Unknown]
